FAERS Safety Report 13979726 (Version 2)
Quarter: 2018Q3

REPORT INFORMATION
  Report Type: Spontaneous
  Country: US (occurrence: US)
  Receive Date: 20170914
  Receipt Date: 20180717
  Transmission Date: 20181010
  Serious: Yes (Other)
  Sender: FDA-Public Use
  Company Number: US-ASTELLAS-2017US025354

PATIENT
  Sex: Male

DRUGS (1)
  1. XTANDI [Suspect]
     Active Substance: ENZALUTAMIDE
     Indication: PROSTATE CANCER
     Route: 048
     Dates: start: 201801

REACTIONS (7)
  - Diarrhoea [Unknown]
  - Drug dose omission [Unknown]
  - Hot flush [Recovering/Resolving]
  - Blood glucose increased [Unknown]
  - Arthralgia [Unknown]
  - Feeling hot [Not Recovered/Not Resolved]
  - Fatigue [Not Recovered/Not Resolved]
